FAERS Safety Report 8802565 (Version 1)
Quarter: 2012Q4

REPORT INFORMATION
  Report Type: 
  Country: PE (occurrence: PE)
  Receive Date: 20120921
  Receipt Date: 20120921
  Transmission Date: 20130627
  Serious: Yes (Hospitalization, Other)
  Sender: FDA-Public Use
  Company Number: PHHO2004PE01606

PATIENT
  Sex: Female

DRUGS (3)
  1. GLIVEC [Suspect]
     Indication: CHRONIC MYELOID LEUKAEMIA
     Dosage: 400 mg, QD
     Route: 048
     Dates: start: 20030528, end: 20030709
  2. GLIVEC [Suspect]
     Dosage: 300 mg, QD
     Route: 048
     Dates: start: 20030710, end: 20031001
  3. GLIVEC [Suspect]
     Dosage: 400 mg, QD
     Route: 048
     Dates: start: 20031002, end: 20031204

REACTIONS (15)
  - Pulmonary tuberculosis [Recovering/Resolving]
  - Pancytopenia [Unknown]
  - Thrombocytopenia [Not Recovered/Not Resolved]
  - Leukopenia [Not Recovered/Not Resolved]
  - Pyrexia [Not Recovered/Not Resolved]
  - Generalised oedema [Unknown]
  - Malaise [Unknown]
  - Nausea [Unknown]
  - Chronic myeloid leukaemia [Unknown]
  - Malignant neoplasm progression [Unknown]
  - Haemoglobin decreased [Not Recovered/Not Resolved]
  - Mouth ulceration [Unknown]
  - Vomiting [Unknown]
  - Weight decreased [Unknown]
  - Decreased appetite [Unknown]
